FAERS Safety Report 5508684-1 (Version None)
Quarter: 2007Q4

REPORT INFORMATION
  Report Type: 
  Country: None (occurrence: None)
  Receive Date: 20071031
  Receipt Date: 20070615
  Transmission Date: 20080405
  Serious: No
  Sender: FDA-Public Use
  Company Number: 2007PV033040

PATIENT
  Age: 18 Year
  Sex: Female

DRUGS (2)
  1. SYMLIN [Suspect]
     Indication: TYPE 1 DIABETES MELLITUS
     Dosage: 60 MCG;SC
     Route: 058
     Dates: start: 20070415
  2. NOVOLOG [Concomitant]

REACTIONS (10)
  - ASTHENIA [None]
  - BLOOD GLUCOSE INCREASED [None]
  - DIZZINESS [None]
  - FATIGUE [None]
  - HEADACHE [None]
  - HYPERGLYCAEMIA [None]
  - IRRITABILITY [None]
  - MALAISE [None]
  - NAUSEA [None]
  - VISION BLURRED [None]
